FAERS Safety Report 16569375 (Version 4)
Quarter: 2019Q4

REPORT INFORMATION
  Report Type: Spontaneous
  Country: JP (occurrence: JP)
  Receive Date: 20190715
  Receipt Date: 20191217
  Transmission Date: 20200122
  Serious: Yes (Other)
  Sender: FDA-Public Use
  Company Number: JP-BEH-2019104513

PATIENT
  Sex: Female
  Weight: 1.16 kg

DRUGS (1)
  1. ALBUMINAR-5 [Suspect]
     Active Substance: ALBUMIN HUMAN
     Indication: PRODUCT USED FOR UNKNOWN INDICATION
     Dosage: 4 VIALS
     Route: 064
     Dates: start: 20170911, end: 20170911

REACTIONS (5)
  - Death neonatal [Fatal]
  - Maternal exposure during pregnancy [Fatal]
  - Foetal heart rate deceleration abnormality [Fatal]
  - Premature baby [Fatal]
  - Tachycardia foetal [Fatal]
